FAERS Safety Report 18254801 (Version 2)
Quarter: 2020Q3

REPORT INFORMATION
  Report Type: Spontaneous
  Country: GB (occurrence: GB)
  Receive Date: 20200910
  Receipt Date: 20200928
  Transmission Date: 20201103
  Serious: Yes (Other)
  Sender: FDA-Public Use
  Company Number: GB-PFIZER INC-2020347474

PATIENT
  Age: 75 Year
  Sex: Female

DRUGS (4)
  1. PREGABALIN. [Suspect]
     Active Substance: PREGABALIN
     Indication: NEURALGIA
     Dosage: 75 MG, 2X/DAY
     Route: 048
  2. PREGABALIN. [Suspect]
     Active Substance: PREGABALIN
     Dosage: 150 MG, 2X/DAY
     Route: 048
  3. PREGABALIN. [Suspect]
     Active Substance: PREGABALIN
     Dosage: 150 MG, 3X/DAY
     Route: 048
     Dates: start: 20200805, end: 2020
  4. FUROSEMIDE. [Concomitant]
     Active Substance: FUROSEMIDE
     Dosage: 40 G, 1X/DAY

REACTIONS (6)
  - Drug ineffective [Unknown]
  - Dizziness [Not Recovered/Not Resolved]
  - Dementia Alzheimer^s type [Not Recovered/Not Resolved]
  - Depressed mood [Unknown]
  - Asthenia [Unknown]
  - Feeling drunk [Unknown]
